FAERS Safety Report 17578209 (Version 1)
Quarter: 2020Q1

REPORT INFORMATION
  Report Type: Spontaneous
  Country: US (occurrence: US)
  Receive Date: 20200324
  Receipt Date: 20200324
  Transmission Date: 20200409
  Serious: Yes (Death, Other)
  Sender: FDA-Public Use
  Company Number: US-NAPPMUNDI-USA-2020-0150473

PATIENT
  Sex: Male

DRUGS (2)
  1. OXYCONTIN [Suspect]
     Active Substance: OXYCODONE HYDROCHLORIDE
     Indication: INJURY
     Route: 048
  2. HYSINGLA ER [Suspect]
     Active Substance: HYDROCODONE BITARTRATE
     Indication: INJURY
     Dosage: UNK
     Route: 048

REACTIONS (17)
  - Drug dependence [Unknown]
  - Abnormal behaviour [Unknown]
  - Gait disturbance [Unknown]
  - Weight decreased [Unknown]
  - Overdose [Unknown]
  - Dyspnoea [Unknown]
  - Death [Fatal]
  - Ill-defined disorder [Unknown]
  - Hospitalisation [Unknown]
  - Nervous system injury [Unknown]
  - Unevaluable event [Unknown]
  - Apathy [Unknown]
  - Liver injury [Unknown]
  - Loss of libido [Unknown]
  - Loss of personal independence in daily activities [Unknown]
  - Renal injury [Unknown]
  - Pneumothorax [Unknown]
